FAERS Safety Report 9037301 (Version 2)
Quarter: 2013Q2

REPORT INFORMATION
  Report Type: Spontaneous
  Country: US (occurrence: US)
  Receive Date: 20130129
  Receipt Date: 20130521
  Transmission Date: 20140414
  Serious: No
  Sender: FDA-Public Use
  Company Number: US-BIOGENIDEC-2013BI003375

PATIENT
  Age: 58 Year
  Sex: Female

DRUGS (9)
  1. TYSABRI [Suspect]
     Indication: MULTIPLE SCLEROSIS
     Route: 042
     Dates: start: 201210
  2. TOPAMAX [Concomitant]
     Indication: MIGRAINE
  3. NOROXIN SODIUM [Concomitant]
     Indication: MIGRAINE
     Route: 048
  4. CYMBALTA [Concomitant]
     Indication: DEPRESSION
  5. MIRAPEX 4 TAB [Concomitant]
  6. METFORMIN [Concomitant]
     Indication: DIABETES MELLITUS
     Route: 048
  7. NOVOLOG PEN [Concomitant]
     Indication: DIABETES MELLITUS
     Route: 058
  8. LEVEMIR [Concomitant]
     Indication: DIABETES MELLITUS
  9. SYNTHROID [Concomitant]
     Indication: HYPOTHYROIDISM
     Dates: start: 201211

REACTIONS (4)
  - Drug effect decreased [Recovered/Resolved]
  - Paraesthesia [Recovered/Resolved]
  - Photopsia [Not Recovered/Not Resolved]
  - Pain in extremity [Not Recovered/Not Resolved]
